FAERS Safety Report 24744438 (Version 1)
Quarter: 2024Q4

REPORT INFORMATION
  Report Type: Spontaneous
  Country: US (occurrence: US)
  Receive Date: 20241217
  Receipt Date: 20241217
  Transmission Date: 20250115
  Serious: Yes (Other)
  Sender: COOPERSURGICAL
  Company Number: US-COOPERSURGICAL, INC.-2024CPS003870

PATIENT
  Age: 47 Year
  Sex: Female
  Weight: 104.31 kg

DRUGS (1)
  1. PARAGARD T 380A [Suspect]
     Active Substance: COPPER
     Indication: Contraception
     Dosage: UNK
     Route: 015
     Dates: start: 20080801, end: 20191011

REACTIONS (20)
  - Antiphospholipid syndrome [Unknown]
  - Neuropathy peripheral [Unknown]
  - Device breakage [Recovered/Resolved]
  - Foreign body in reproductive tract [Recovered/Resolved]
  - Complication of device removal [Recovered/Resolved]
  - Embedded device [Recovered/Resolved]
  - Heart rate decreased [Unknown]
  - Thyroid mass [Unknown]
  - Intervertebral disc degeneration [Unknown]
  - Osteoarthritis [Unknown]
  - Neuralgia [Unknown]
  - Bursitis [Unknown]
  - Anxiety [Unknown]
  - Stress [Unknown]
  - Mononeuropathy multiplex [Unknown]
  - Tremor [Unknown]
  - Pelvic pain [Not Recovered/Not Resolved]
  - Procedural pain [Recovered/Resolved]
  - Abnormal uterine bleeding [Recovered/Resolved]
  - Device expulsion [Recovered/Resolved]

NARRATIVE: CASE EVENT DATE: 20160101
